FAERS Safety Report 7590134-5 (Version None)
Quarter: 2011Q3

REPORT INFORMATION
  Report Type: 
  Country: None (occurrence: None)
  Receive Date: 20110705
  Receipt Date: 20110624
  Transmission Date: 20111222
  Serious: Yes (Hospitalization)
  Sender: FDA-Public Use
  Company Number: B0730572A

PATIENT
  Sex: Male

DRUGS (6)
  1. SPIRIVA [Concomitant]
  2. ALFUZOSINA CLORIDRATO [Concomitant]
     Dosage: 10MG PER DAY
     Route: 048
  3. PANTOPRAZOLE SODIUM [Suspect]
     Indication: PROPHYLAXIS
     Dosage: 2U PER DAY
     Route: 048
     Dates: start: 20110601, end: 20110603
  4. SERETIDE [Concomitant]
  5. LEVOFLOXACIN [Suspect]
     Dosage: 2U PER DAY
     Route: 042
     Dates: start: 20110601, end: 20110606
  6. ARIXTRA [Suspect]
     Dosage: 2U PER DAY
     Route: 058
     Dates: start: 20110602, end: 20110610

REACTIONS (2)
  - GENERALISED ERYTHEMA [None]
  - PRURITUS [None]
